FAERS Safety Report 6620200-X (Version None)
Quarter: 2010Q1

REPORT INFORMATION
  Report Type: 
  Country: None (occurrence: None)
  Receive Date: 20100304
  Receipt Date: 20100220
  Transmission Date: 20100710
  Serious: Yes (Hospitalization)
  Sender: FDA-Public Use
  Company Number: 2010AP000352

PATIENT
  Age: 53 Year
  Sex: Female

DRUGS (3)
  1. CITALOPRAM HYDROBROMIDE [Suspect]
  2. ALPRAZOLAM [Suspect]
  3. VERAPAMIL HYDROCHLORIDE [Suspect]

REACTIONS (5)
  - BRADYCARDIA [None]
  - CONVULSION [None]
  - MENTAL STATUS CHANGES [None]
  - MULTIPLE DRUG OVERDOSE INTENTIONAL [None]
  - TORSADE DE POINTES [None]
